FAERS Safety Report 20899223 (Version 1)
Quarter: 2022Q2

REPORT INFORMATION
  Report Type: Spontaneous
  Country: IT (occurrence: IT)
  Receive Date: 20220601
  Receipt Date: 20220601
  Transmission Date: 20220721
  Serious: Yes (Hospitalization, Other)
  Sender: FDA-Public Use
  Company Number: IT-MINISAL02-868636

PATIENT
  Age: 61 Year
  Sex: Male
  Weight: 122 kg

DRUGS (12)
  1. OXALIPLATIN [Suspect]
     Active Substance: OXALIPLATIN
     Indication: Colon cancer
     Dosage: 211.7 MILLIGRAM, CYCLICAL
     Route: 042
     Dates: start: 20220301, end: 20220301
  2. BEVACIZUMAB [Suspect]
     Active Substance: BEVACIZUMAB
     Indication: Colon cancer
     Dosage: 625 MILLIGRAM, CYCLICAL
     Route: 042
     Dates: start: 20220301, end: 20220301
  3. FLUOROURACIL [Suspect]
     Active Substance: FLUOROURACIL
     Indication: Colon cancer
     Dosage: 996 MILLIGRAM, CYCLICAL
     Route: 042
     Dates: start: 20220301, end: 20220301
  4. FLUOROURACIL [Suspect]
     Active Substance: FLUOROURACIL
     Dosage: 5976 MILLIGRAM, CYCLICAL
     Route: 042
     Dates: start: 20220301, end: 20220301
  5. FENOFIBRATE [Concomitant]
     Active Substance: FENOFIBRATE
     Indication: Product used for unknown indication
     Dosage: UNK
     Route: 065
  6. LERCANIDIPINA ZENTIVA [Concomitant]
     Indication: Product used for unknown indication
     Dosage: UNK
     Route: 065
  7. METFORMIN HYDROCHLORIDE [Concomitant]
     Active Substance: METFORMIN HYDROCHLORIDE
     Indication: Product used for unknown indication
     Dosage: UNK
     Route: 065
  8. NEBIVOLOL [Concomitant]
     Active Substance: NEBIVOLOL
     Indication: Product used for unknown indication
     Dosage: UNK
     Route: 065
  9. RIFAXIMIN [Concomitant]
     Active Substance: RIFAXIMIN
     Indication: Product used for unknown indication
     Dosage: UNK
     Route: 065
  10. PANTOPRAZOLE SODIUM [Concomitant]
     Active Substance: PANTOPRAZOLE SODIUM
     Indication: Product used for unknown indication
     Dosage: UNK
     Route: 065
  11. REPAGLINIDE ACCORD [Concomitant]
     Indication: Product used for unknown indication
     Dosage: UNK
     Route: 065
  12. METFORMIN ACCORD [Concomitant]
     Indication: Product used for unknown indication
     Dosage: UNK
     Route: 065

REACTIONS (1)
  - Acute myocardial infarction [Recovering/Resolving]

NARRATIVE: CASE EVENT DATE: 20220304
